FAERS Safety Report 9778173 (Version 1)
Quarter: 2013Q4

REPORT INFORMATION
  Report Type: Spontaneous
  Country: US (occurrence: US)
  Receive Date: 20131223
  Receipt Date: 20131223
  Transmission Date: 20140711
  Serious: No
  Sender: FDA-Public Use
  Company Number: US-009507513-1312USA009961

PATIENT
  Age: 27 Year
  Sex: Female
  Weight: 58.96 kg

DRUGS (2)
  1. NEXPLANON [Suspect]
     Indication: CONTRACEPTION
     Dosage: 1 ROD
     Route: 059
     Dates: start: 20131217
  2. VITAMINS (UNSPECIFIED) [Concomitant]
     Dosage: UNK

REACTIONS (3)
  - Urticaria [Not Recovered/Not Resolved]
  - Rash [Not Recovered/Not Resolved]
  - Exposure during breast feeding [Unknown]
